FAERS Safety Report 4665552-5 (Version None)
Quarter: 2005Q2

REPORT INFORMATION
  Report Type: 
  Country: None (occurrence: None)
  Receive Date: 20050518
  Receipt Date: 20050518
  Transmission Date: 20051028
  Serious: Yes (Hospitalization)
  Sender: FDA-Public Use
  Company Number: None

PATIENT
  Age: 61 Year
  Sex: Male
  Weight: 80 kg

DRUGS (6)
  1. FLEET ACCU PREP [Suspect]
     Indication: COLONOSCOPY
     Dosage: 90 ML / PO
     Route: 048
  2. PERCOCET [Concomitant]
  3. DURICEF [Concomitant]
  4. ATROVENT [Concomitant]
  5. NEXIUM [Concomitant]
  6. COMBIVENT [Concomitant]

REACTIONS (13)
  - ABDOMINAL PAIN UPPER [None]
  - ALANINE AMINOTRANSFERASE INCREASED [None]
  - ASPARTATE AMINOTRANSFERASE INCREASED [None]
  - BLOOD ALKALINE PHOSPHATASE INCREASED [None]
  - BLOOD BILIRUBIN INCREASED [None]
  - CHILLS [None]
  - CHOLECYSTITIS CHRONIC [None]
  - CHOLELITHIASIS [None]
  - COLONIC POLYP [None]
  - GALLBLADDER ENLARGEMENT [None]
  - LIPASE INCREASED [None]
  - RENAL CYST [None]
  - WHITE BLOOD CELL COUNT INCREASED [None]
